FAERS Safety Report 6192683-3 (Version None)
Quarter: 2009Q2

REPORT INFORMATION
  Report Type: 
  Country: None (occurrence: None)
  Receive Date: 20090518
  Receipt Date: 20090508
  Transmission Date: 20091009
  Serious: Yes (Death, Hospitalization)
  Sender: FDA-Public Use
  Company Number: US-ROCHE-628702

PATIENT
  Sex: Male
  Weight: 54.4 kg

DRUGS (1)
  1. CAPECITABINE [Suspect]
     Indication: COLORECTAL CANCER
     Route: 048
     Dates: start: 20080324, end: 20090422

REACTIONS (5)
  - ASTHENIA [None]
  - DEATH [None]
  - DEHYDRATION [None]
  - DIARRHOEA [None]
  - FATIGUE [None]
